FAERS Safety Report 9917103 (Version 1)
Quarter: 2014Q1

REPORT INFORMATION
  Report Type: Spontaneous
  Country: US (occurrence: US)
  Receive Date: 20140221
  Receipt Date: 20140221
  Transmission Date: 20141002
  Serious: Yes (Other)
  Sender: FDA-Public Use
  Company Number: US-JNJFOC-20140204958

PATIENT
  Age: 65 Year
  Sex: Male
  Weight: 88.45 kg

DRUGS (1)
  1. XARELTO [Suspect]
     Indication: THROMBOSIS PROPHYLAXIS
     Route: 048
     Dates: start: 2013

REACTIONS (1)
  - Neck pain [Not Recovered/Not Resolved]
